FAERS Safety Report 13092083 (Version 1)
Quarter: 2017Q1

REPORT INFORMATION
  Report Type: Spontaneous
  Country: US (occurrence: US)
  Receive Date: 20170104
  Receipt Date: 20170104
  Transmission Date: 20170428
  Serious: No
  Sender: FDA-Public Use
  Company Number: None

PATIENT
  Age: 79 Year
  Sex: Female
  Weight: 85.7 kg

DRUGS (2)
  1. LINEZOLID 600MG [Suspect]
     Active Substance: LINEZOLID
     Indication: ABDOMINAL ABSCESS
     Route: 042
     Dates: start: 20161129, end: 20161223
  2. TPN [Suspect]
     Active Substance: AMINO ACIDS\DEXTROSE\ELECTROLYTES NOS\SOYBEAN OIL
     Indication: MALNUTRITION
     Dosage: TPN 2L/DAY IV
     Route: 042
     Dates: start: 20161119, end: 20161223

REACTIONS (3)
  - Retroperitoneal abscess [None]
  - Transaminases increased [None]
  - Sepsis [None]

NARRATIVE: CASE EVENT DATE: 20161203
